FAERS Safety Report 13050676 (Version 2)
Quarter: 2016Q4

REPORT INFORMATION
  Report Type: Spontaneous
  Country: US (occurrence: US)
  Receive Date: 20161221
  Receipt Date: 20161230
  Transmission Date: 20170207
  Serious: Yes (Other)
  Sender: FDA-Public Use
  Company Number: US-PFIZER INC-2016580587

PATIENT
  Age: 74 Year
  Sex: Female

DRUGS (13)
  1. IBRANCE [Suspect]
     Active Substance: PALBOCICLIB
     Indication: BREAST CANCER FEMALE
     Dosage: 125 MG, DAILY (QD)
     Route: 048
     Dates: start: 20161119
  2. VITAMIN B-6 [Concomitant]
     Active Substance: PYRIDOXINE
     Dosage: UNK
  3. VITAMIN B12 + FOLIC ACID [Concomitant]
     Dosage: UNK
  4. MAGNESIUM CITRATE. [Concomitant]
     Active Substance: MAGNESIUM CITRATE
     Dosage: UNK
  5. FASLODEX [Concomitant]
     Active Substance: FULVESTRANT
     Dosage: UNK
  6. MINOCYCLINE HCL [Concomitant]
     Active Substance: MINOCYCLINE HYDROCHLORIDE
     Dosage: UNK
  7. BENADRYL ALLERGY [Concomitant]
     Active Substance: DIPHENHYDRAMINE HYDROCHLORIDE
     Dosage: UNK
  8. CALCIUM [Concomitant]
     Active Substance: CALCIUM
     Dosage: UNK
  9. ANTACID [Concomitant]
     Active Substance: ALUMINUM HYDROXIDE\CALCIUM CARBONATE\DIMETHICONE\MAGNESIUM HYDROXIDE
     Dosage: UNK
  10. CROMOLYN SODIUM. [Concomitant]
     Active Substance: CROMOLYN SODIUM
     Dosage: UNK
  11. FOLIC ACID. [Concomitant]
     Active Substance: FOLIC ACID
     Dosage: UNK
  12. FLONASE [Concomitant]
     Active Substance: FLUTICASONE PROPIONATE
     Dosage: UNK
  13. VITAMIN D3 [Concomitant]
     Active Substance: CHOLECALCIFEROL
     Dosage: UNK

REACTIONS (7)
  - Leukopenia [Unknown]
  - Anaemia [Unknown]
  - Dyspnoea [Unknown]
  - Thrombocytopenia [Unknown]
  - Fatigue [Not Recovered/Not Resolved]
  - Epistaxis [Unknown]
  - Neutrophil count decreased [Not Recovered/Not Resolved]

NARRATIVE: CASE EVENT DATE: 20161207
